FAERS Safety Report 5239303-X (Version None)
Quarter: 2007Q1

REPORT INFORMATION
  Report Type: 
  Country: None (occurrence: None)
  Receive Date: 20070216
  Receipt Date: 20030812
  Transmission Date: 20070707
  Serious: Yes (Hospitalization, Congenital Anomaly)
  Sender: FDA-Public Use
  Company Number: US-ROCHE-261289

PATIENT
  Sex: Female
  Weight: 2.3 kg

DRUGS (15)
  1. MYCOPHENOLATE MOFETIL [Suspect]
  2. MYCOPHENOLATE MOFETIL [Suspect]
  3. PREDNISONE TAB [Suspect]
  4. PREDNISONE TAB [Suspect]
     Dosage: TAPERING DOSE.
  5. PREDNISONE TAB [Suspect]
  6. TACROLIMUS [Suspect]
  7. METHYLPREDNISOLONE 16MG TAB [Concomitant]
  8. CEFEPIME [Concomitant]
  9. VANCOMYCIN HYDROCHLORIDE [Concomitant]
  10. NIFEDIPINE [Concomitant]
  11. TRIMETHOPRIM + SULFAMETHOXAZOLE [Concomitant]
  12. NYSTATIN SOLUTION [Concomitant]
  13. MULTI-VITAMIN [Concomitant]
  14. ACYCLOVIR [Concomitant]
  15. FAMOTIDINE [Concomitant]

REACTIONS (7)
  - APNOEA [None]
  - BRADYCARDIA [None]
  - CONGENITAL HAND MALFORMATION [None]
  - LIMB MALFORMATION [None]
  - PNEUMONIA [None]
  - PREMATURE BABY [None]
  - VASCULAR ANOMALY [None]
